FAERS Safety Report 15437671 (Version 1)
Quarter: 2018Q3

REPORT INFORMATION
  Report Type: Spontaneous
  Country: DE (occurrence: US)
  Receive Date: 20180927
  Receipt Date: 20180927
  Transmission Date: 20181010
  Serious: Yes (Hospitalization, Other)
  Sender: FDA-Public Use
  Company Number: DE-AMGEN-USASP2018131327

PATIENT
  Age: 66 Year
  Sex: Female
  Weight: 59.2 kg

DRUGS (8)
  1. ERYTHROZYTEN [Concomitant]
     Indication: ANAEMIA
     Dosage: UNK
     Dates: start: 20170328, end: 20170328
  2. CALCIUM D3 [Concomitant]
     Active Substance: CALCIUM\CHOLECALCIFEROL
     Indication: PROPHYLAXIS
     Dosage: UNK
     Dates: start: 20170209
  3. LETROZOLE. [Concomitant]
     Active Substance: LETROZOLE
     Dosage: UNK
     Dates: start: 20170327
  4. KALINOR [Concomitant]
     Indication: BREAST CANCER
     Dosage: UNK
     Dates: start: 20170906
  5. VITAMIN D3?HEVERT [Concomitant]
     Indication: PROPHYLAXIS
     Dosage: UNK
     Dates: start: 20170209
  6. L?THYROXIN?HENNING [Concomitant]
     Indication: THYROID FUNCTION TEST ABNORMAL
     Dosage: UNK
     Dates: start: 20170209
  7. PALBOCICLIB [Suspect]
     Active Substance: PALBOCICLIB
     Indication: BREAST CANCER
     Dosage: 125 MG, QD
     Route: 048
     Dates: start: 20170327
  8. XGEVA [Suspect]
     Active Substance: DENOSUMAB
     Indication: METASTASES TO BONE
     Dosage: UNK
     Route: 058
     Dates: start: 20170228

REACTIONS (1)
  - Osteonecrosis of jaw [Recovered/Resolved]

NARRATIVE: CASE EVENT DATE: 20180705
